FAERS Safety Report 16516454 (Version 3)
Quarter: 2022Q2

REPORT INFORMATION
  Report Type: Spontaneous
  Country: FR (occurrence: FR)
  Receive Date: 20190702
  Receipt Date: 20220622
  Transmission Date: 20220721
  Serious: Yes (Other)
  Sender: FDA-Public Use
  Company Number: FR-PFIZER INC-2018529401

PATIENT
  Age: 41 Year
  Sex: Female
  Weight: 74 kg

DRUGS (26)
  1. TAMOXIFEN [Suspect]
     Active Substance: TAMOXIFEN
     Indication: Product used for unknown indication
     Dosage: 8 MILLIGRAM, TOTAL
     Route: 065
     Dates: start: 2011
  2. EPIRUBICIN [Suspect]
     Active Substance: EPIRUBICIN
     Indication: Breast cancer
     Dosage: 180 MILLIGRAM, TOTAL
     Route: 065
     Dates: start: 20111026, end: 20111026
  3. EPIRUBICIN [Suspect]
     Active Substance: EPIRUBICIN
     Dosage: 180 MILLIGRAM, TOTAL
     Route: 065
     Dates: start: 20111207, end: 20111207
  4. EPIRUBICIN [Suspect]
     Active Substance: EPIRUBICIN
     Dosage: UNK
     Route: 041
     Dates: start: 20111026, end: 20111207
  5. FLUOROURACIL [Suspect]
     Active Substance: FLUOROURACIL
     Indication: Breast cancer
     Dosage: 900 MILLIGRAM, TOTAL
     Route: 042
     Dates: start: 20111026, end: 20111026
  6. FLUOROURACIL [Suspect]
     Active Substance: FLUOROURACIL
     Dosage: 900 MILLIGRAM, TOTAL
     Route: 042
     Dates: start: 20111116, end: 20111116
  7. FLUOROURACIL [Suspect]
     Active Substance: FLUOROURACIL
     Dosage: UNK
     Route: 041
     Dates: start: 20111026, end: 20111207
  8. DOCETAXEL [Suspect]
     Active Substance: DOCETAXEL
     Indication: Breast cancer female
     Dosage: UNK UNK, TOTAL
     Route: 065
     Dates: start: 20111026, end: 20120215
  9. DOCETAXEL [Suspect]
     Active Substance: DOCETAXEL
     Dosage: DOCETAXEL
     Route: 065
     Dates: start: 20120104, end: 20120104
  10. DOCETAXEL [Suspect]
     Active Substance: DOCETAXEL
     Dosage: 180 MILLIGRAM, TOTAL
     Route: 065
     Dates: start: 20120125, end: 20120125
  11. DOCETAXEL [Suspect]
     Active Substance: DOCETAXEL
     Dosage: 180 MILLIGRAM, TOTAL
     Route: 065
     Dates: start: 20120215, end: 20120215
  12. TAMOXIFEN CITRATE [Suspect]
     Active Substance: TAMOXIFEN CITRATE
     Indication: Breast cancer female
     Dosage: UNK
     Route: 065
     Dates: start: 20120501
  13. TAXOTERE [Suspect]
     Active Substance: DOCETAXEL
     Indication: Breast cancer
     Dosage: 3 COURSES
     Route: 065
  14. TAXOTERE [Suspect]
     Active Substance: DOCETAXEL
     Dosage: UNK
     Route: 041
     Dates: start: 20120104, end: 20160216
  15. CYCLOPHOSPHAMIDE [Suspect]
     Active Substance: CYCLOPHOSPHAMIDE
     Indication: Breast cancer
     Dosage: 3 COURSES
     Route: 065
     Dates: start: 20111207, end: 20111207
  16. CYCLOPHOSPHAMIDE [Suspect]
     Active Substance: CYCLOPHOSPHAMIDE
     Dosage: 900 MILLIGRAM, QD
     Route: 065
     Dates: start: 20111116, end: 20111116
  17. CYCLOPHOSPHAMIDE [Suspect]
     Active Substance: CYCLOPHOSPHAMIDE
     Dosage: 900 MILLIGRAM, QD
     Route: 065
     Dates: start: 20111026, end: 20111026
  18. CYCLOPHOSPHAMIDE [Suspect]
     Active Substance: CYCLOPHOSPHAMIDE
     Dosage: UNK UNK, QD
     Route: 041
     Dates: start: 201111, end: 20111207
  19. DEXAMETHASONE [Concomitant]
     Active Substance: DEXAMETHASONE
     Dosage: 8 MILLIGRAM, QD
     Route: 048
     Dates: start: 20120104, end: 20120105
  20. DEXAMETHASONE [Concomitant]
     Active Substance: DEXAMETHASONE
     Dosage: 8 MILLIGRAM, QD
     Route: 048
     Dates: start: 20120215, end: 20120215
  21. DEXAMETHASONE [Concomitant]
     Active Substance: DEXAMETHASONE
     Dosage: 8 MILLIGRAM, QD
     Route: 048
     Dates: start: 20120125, end: 20120125
  22. ONDANSETRON [Concomitant]
     Active Substance: ONDANSETRON
     Dosage: 8 MILLIGRAM, TOTAL
     Route: 042
     Dates: start: 20120104, end: 20120104
  23. ONDANSETRON [Concomitant]
     Active Substance: ONDANSETRON
     Dosage: 8 MILLIGRAM, TOTAL
     Route: 042
     Dates: start: 20111207, end: 20111207
  24. ONDANSETRON [Concomitant]
     Active Substance: ONDANSETRON
     Dosage: 8 MILLIGRAM, TOTAL
     Route: 042
     Dates: start: 20120215, end: 20120215
  25. ONDANSETRON [Concomitant]
     Active Substance: ONDANSETRON
     Dosage: 8 MILLIGRAM, TOTAL
     Route: 042
     Dates: start: 20111116, end: 20111116
  26. ONDANSETRON [Concomitant]
     Active Substance: ONDANSETRON
     Dosage: 8 MILLIGRAM, TOTAL
     Route: 042
     Dates: start: 20111026, end: 20111026

REACTIONS (46)
  - Emotional disorder [Unknown]
  - Muscle spasms [Not Recovered/Not Resolved]
  - Dysstasia [Unknown]
  - Gait disturbance [Unknown]
  - Hallucination [Unknown]
  - Arthralgia [Not Recovered/Not Resolved]
  - Depressive symptom [Unknown]
  - Disturbance in attention [Unknown]
  - Neuralgia [Unknown]
  - Pain in extremity [Unknown]
  - Tetany [Unknown]
  - Insomnia [Unknown]
  - Skin toxicity [Unknown]
  - Sensory loss [Unknown]
  - Mucosal toxicity [Unknown]
  - Muscle contracture [Unknown]
  - Cognitive disorder [Not Recovered/Not Resolved]
  - Facial pain [Unknown]
  - Weight increased [Recovering/Resolving]
  - Tinnitus [Unknown]
  - Visual acuity reduced [Unknown]
  - Visual impairment [Unknown]
  - Pain [Unknown]
  - Neuropathy peripheral [Unknown]
  - Hot flush [Not Recovered/Not Resolved]
  - Dizziness [Unknown]
  - Fatigue [Unknown]
  - Nausea [Unknown]
  - Herpes zoster [Unknown]
  - Skin sensitisation [Unknown]
  - Hepatic cytolysis [Recovering/Resolving]
  - Paraesthesia [Not Recovered/Not Resolved]
  - Chills [Unknown]
  - Gingival pain [Unknown]
  - Pathological fracture [Unknown]
  - Loss of libido [Unknown]
  - Tooth disorder [Unknown]
  - Vomiting [Unknown]
  - Ageusia [Not Recovered/Not Resolved]
  - Periostitis [Unknown]
  - Platelet count decreased [Unknown]
  - Heavy menstrual bleeding [Unknown]
  - Vulvovaginal dryness [Unknown]
  - Executive dysfunction [Not Recovered/Not Resolved]
  - Rash [Not Recovered/Not Resolved]
  - Hallucination, synaesthetic [Not Recovered/Not Resolved]

NARRATIVE: CASE EVENT DATE: 20111017
